FAERS Safety Report 24726321 (Version 1)
Quarter: 2024Q4

REPORT INFORMATION
  Report Type: Spontaneous
  Country: US (occurrence: None)
  Receive Date: 20241211
  Receipt Date: 20241211
  Transmission Date: 20250115
  Serious: No
  Sender: Public
  Company Number: None

PATIENT
  Age: 75 Year
  Sex: Male

DRUGS (1)
  1. LORAZEPAM [Suspect]
     Active Substance: LORAZEPAM
     Indication: Anxiety
     Dosage: OTHER FREQUENCY : ONCE;?
     Route: 048
     Dates: start: 20220801, end: 20220801

REACTIONS (3)
  - Somnolence [None]
  - Somnolence [None]
  - Alcohol use [None]

NARRATIVE: CASE EVENT DATE: 20220801
